FAERS Safety Report 6162699-1 (Version None)
Quarter: 2009Q2

REPORT INFORMATION
  Report Type: 
  Country: None (occurrence: None)
  Receive Date: 20090421
  Receipt Date: 20081106
  Transmission Date: 20091009
  Serious: No
  Sender: FDA-Public Use
  Company Number: US-ASTRAZENECA-2003UW05733

PATIENT
  Age: 72 Year
  Sex: Female
  Weight: 50.8 kg

DRUGS (13)
  1. TOPROL-XL [Suspect]
     Indication: PALPITATIONS
     Dosage: 12.5 MG
     Route: 048
  2. TOPROL-XL [Suspect]
     Indication: HYPERTENSION
     Dosage: 12.5 MG
     Route: 048
  3. TOPROL-XL [Suspect]
     Indication: CARDIAC FAILURE
     Dosage: 12.5 MG
     Route: 048
  4. TOPROL-XL [Suspect]
     Indication: BLOOD PRESSURE
     Dosage: 12.5 MG
     Route: 048
  5. TOPROL-XL [Suspect]
     Route: 048
     Dates: start: 20050101
  6. TOPROL-XL [Suspect]
     Route: 048
     Dates: start: 20050101
  7. TOPROL-XL [Suspect]
     Route: 048
     Dates: start: 20050101
  8. TOPROL-XL [Suspect]
     Route: 048
     Dates: start: 20050101
  9. TOPROL-XL [Suspect]
     Route: 048
     Dates: start: 20010101
  10. TOPROL-XL [Suspect]
     Route: 048
     Dates: start: 20010101
  11. TOPROL-XL [Suspect]
     Route: 048
     Dates: start: 20010101
  12. TOPROL-XL [Suspect]
     Route: 048
     Dates: start: 20010101
  13. VITAMIN D [Concomitant]

REACTIONS (5)
  - BLOOD PRESSURE DECREASED [None]
  - DEPRESSION [None]
  - HYPOTENSION [None]
  - ILL-DEFINED DISORDER [None]
  - SYNCOPE [None]
